FAERS Safety Report 16919122 (Version 1)
Quarter: 2019Q4

REPORT INFORMATION
  Report Type: Spontaneous
  Country: US (occurrence: US)
  Receive Date: 20191015
  Receipt Date: 20191015
  Transmission Date: 20200122
  Serious: No
  Sender: FDA-Public Use
  Company Number: US-ELI_LILLY_AND_COMPANY-US201909012347

PATIENT
  Sex: Female

DRUGS (2)
  1. HUMALOG MIX75/25 [Suspect]
     Active Substance: INSULIN LISPRO
     Indication: TYPE 2 DIABETES MELLITUS
     Dosage: 45 U, BID
     Route: 058
  2. HUMALOG MIX75/25 [Suspect]
     Active Substance: INSULIN LISPRO
     Dosage: UNK UNK, UNKNOWN
     Route: 058

REACTIONS (8)
  - Visual impairment [Unknown]
  - Arthralgia [Unknown]
  - Pain in extremity [Unknown]
  - Hypoacusis [Unknown]
  - Fall [Unknown]
  - Fatigue [Unknown]
  - Mobility decreased [Unknown]
  - Contusion [Unknown]

NARRATIVE: CASE EVENT DATE: 20190920
